FAERS Safety Report 16547058 (Version 1)
Quarter: 2019Q3

REPORT INFORMATION
  Report Type: Spontaneous
  Country: DE (occurrence: DE)
  Receive Date: 20190709
  Receipt Date: 20190709
  Transmission Date: 20191004
  Serious: Yes (Other)
  Sender: FDA-Public Use
  Company Number: PHHY2019DE155702

PATIENT
  Age: 57 Year
  Sex: Female

DRUGS (4)
  1. PREDNISOLON [Suspect]
     Active Substance: PREDNISOLONE
     Indication: PRODUCT USED FOR UNKNOWN INDICATION
     Dosage: 2.5 MG, BID (2.5 TO 5 MG ALTERNATIVELY)
     Route: 065
     Dates: start: 20190402
  2. MTX [Suspect]
     Active Substance: METHOTREXATE SODIUM
     Indication: PRODUCT USED FOR UNKNOWN INDICATION
     Dosage: 15 MG, QW (15 MG, WEEKLY)
     Route: 065
     Dates: start: 20181124, end: 20190528
  3. PREDNISOLON [Suspect]
     Active Substance: PREDNISOLONE
     Dosage: 5 MG, BID (2.5 TO 5 MG ALTERNATIVELY)
     Route: 065
     Dates: start: 20190402
  4. XELJANZ [Suspect]
     Active Substance: TOFACITINIB CITRATE
     Indication: RHEUMATOID ARTHRITIS
     Dosage: 10 MG, QD (5 MG, 2X/DAY)
     Route: 065
     Dates: start: 20180726, end: 20190528

REACTIONS (2)
  - Hepatitis E [Recovering/Resolving]
  - Liver function test abnormal [Unknown]

NARRATIVE: CASE EVENT DATE: 201905
